FAERS Safety Report 5933378-8 (Version None)
Quarter: 2008Q4

REPORT INFORMATION
  Report Type: 
  Country: None (occurrence: None)
  Receive Date: 20081023
  Receipt Date: 20081008
  Transmission Date: 20090506
  Serious: Yes (Death)
  Sender: FDA-Public Use
  Company Number: 8037741

PATIENT
  Age: 4 Month
  Sex: Male
  Weight: 3 kg

DRUGS (3)
  1. KEPPRA [Suspect]
     Indication: OLIGODENDROGLIOMA
     Dosage: 1500 MG /D TRP
     Route: 064
     Dates: end: 20080509
  2. VITAMIN TAB [Concomitant]
  3. FOLIC ACID [Concomitant]

REACTIONS (2)
  - MATERNAL DRUGS AFFECTING FOETUS [None]
  - SUDDEN INFANT DEATH SYNDROME [None]
